FAERS Safety Report 6469954-6 (Version None)
Quarter: 2009Q4

REPORT INFORMATION
  Report Type: 
  Country: None (occurrence: None)
  Receive Date: 20091203
  Receipt Date: 20080723
  Transmission Date: 20100525
  Serious: Yes (Other)
  Sender: FDA-Public Use
  Company Number: GB-ELI_LILLY_AND_COMPANY-GB200712003211

PATIENT
  Sex: Male
  Weight: 157.5 kg

DRUGS (11)
  1. BYETTA [Suspect]
     Indication: TYPE 2 DIABETES MELLITUS
     Dosage: 5 UG, 2/D
     Route: 058
     Dates: start: 20070815, end: 20070911
  2. BYETTA [Suspect]
     Dosage: 10 UG, 2/D
     Route: 058
     Dates: start: 20070912, end: 20071114
  3. BYETTA [Suspect]
     Dosage: 10UG/AM, 5UG/PM
     Route: 058
     Dates: start: 20071115, end: 20071220
  4. PLAVIX [Concomitant]
     Dosage: UNK, UNKNOWN
     Route: 065
  5. CYCLOSERINE [Concomitant]
     Dosage: UNK, UNKNOWN
     Route: 065
  6. SIMAVASTATIN [Concomitant]
     Dosage: UNK, UNKNOWN
     Route: 065
  7. INDERAL LA [Concomitant]
     Dosage: UNK, UNKNOWN
     Route: 065
  8. RAMIPRIL [Concomitant]
     Dosage: UNK, UNKNOWN
     Route: 065
  9. SERTRALINE HYDROCHLORIDE [Concomitant]
     Dosage: UNK, UNKNOWN
     Route: 065
  10. GLICLAZIDE [Concomitant]
     Dosage: 60 MG, UNKNOWN
     Route: 065
     Dates: end: 20071108
  11. GLUCOPHAGE [Concomitant]
     Dosage: 1500 MG, UNKNOWN
     Route: 065

REACTIONS (5)
  - AGGRESSION [None]
  - CONFUSIONAL STATE [None]
  - DYSPNOEA [None]
  - HYPOGLYCAEMIA [None]
  - NIGHT SWEATS [None]
